FAERS Safety Report 8186895-7 (Version None)
Quarter: 2012Q1

REPORT INFORMATION
  Report Type: 
  Country: None (occurrence: None)
  Receive Date: 20120302
  Receipt Date: 20120213
  Transmission Date: 20120608
  Serious: Yes (Hospitalization, Other)
  Sender: FDA-Public Use
  Company Number: BR12-032-AE

PATIENT
  Age: 64 Year
  Sex: Male
  Weight: 54.4316 kg

DRUGS (1)
  1. OXY / APAP TABLETS, USP 10 MG / 325 MG (AMNEAL) [Suspect]
     Indication: PAIN IN EXTREMITY
     Dosage: 1 TABLET, TID, ORAL
     Route: 048
     Dates: start: 20110101, end: 20120212

REACTIONS (6)
  - VOMITING [None]
  - DIARRHOEA [None]
  - CARDIAC ARREST [None]
  - CONVULSION [None]
  - OVERDOSE [None]
  - DRUG INEFFECTIVE [None]
